FAERS Safety Report 4493198-0 (Version None)
Quarter: 2004Q4

REPORT INFORMATION
  Report Type: 
  Country: None (occurrence: None)
  Receive Date: 20041029
  Receipt Date: 20041025
  Transmission Date: 20050328
  Serious: No
  Sender: FDA-Public Use
  Company Number: TAP2004Q01363

PATIENT
  Age: 78 Year
  Sex: Female

DRUGS (4)
  1. PREVACID [Suspect]
     Indication: ULCER
     Dosage: 15 MG, 1 IN 1 D, PER ORAL
     Route: 048
     Dates: start: 20041012, end: 20041020
  2. LEVOXYL [Concomitant]
  3. LUMIGAN DROPS (BIMATOPROST) [Concomitant]
  4. TIMOPTIC DROPS (TIMOLOL MALEATE) [Concomitant]

REACTIONS (2)
  - ARTHRALGIA [None]
  - VISION BLURRED [None]
